FAERS Safety Report 13686963 (Version 2)
Quarter: 2017Q3

REPORT INFORMATION
  Report Type: Report from Study
  Country: US (occurrence: CA)
  Receive Date: 20170623
  Receipt Date: 20170705
  Transmission Date: 20171127
  Serious: Yes (Other)
  Sender: FDA-Public Use
  Company Number: US-SUNOVION-2017SUN002663

PATIENT
  Age: 65 Year
  Sex: Female
  Weight: 88 kg

DRUGS (19)
  1. PREMARIN [Concomitant]
     Active Substance: ESTROGENS, CONJUGATED
     Dosage: UNK
  2. VENTOLIN [Concomitant]
     Active Substance: ALBUTEROL SULFATE
     Indication: ASTHMA
     Dosage: UNK
  3. MEDROXYPROGESTERON [Concomitant]
     Dosage: UNK
  4. AVELOX [Concomitant]
     Active Substance: MOXIFLOXACIN HYDROCHLORIDE
     Dosage: UNK
     Dates: start: 201507
  5. PREDNISONE. [Concomitant]
     Active Substance: PREDNISONE
     Dosage: UNK
  6. ALVESCO [Concomitant]
     Active Substance: CICLESONIDE
     Dosage: 200 ?G, UNK
     Route: 055
     Dates: start: 20150205
  7. REACTINE [Concomitant]
     Active Substance: CETIRIZINE HYDROCHLORIDE
     Dosage: 20 MG, UNK
  8. METFORMIN [Concomitant]
     Active Substance: METFORMIN HYDROCHLORIDE
     Dosage: UNK
     Dates: end: 201412
  9. LEVOFLOXACIN. [Concomitant]
     Active Substance: LEVOFLOXACIN
     Dosage: UNK
     Dates: start: 201508
  10. XOLAIR [Suspect]
     Active Substance: OMALIZUMAB
     Indication: ASTHMA
     Dosage: 375 MG, EVERY 4 WEEKS
     Route: 058
     Dates: start: 20150611
  11. XOLAIR [Suspect]
     Active Substance: OMALIZUMAB
     Dosage: UNK
     Route: 058
     Dates: start: 20170605
  12. GLYCOPYRROLATE. [Suspect]
     Active Substance: GLYCOPYRROLATE
     Indication: ASTHMA
     Dosage: 1 DF (PUFF), QD
     Route: 055
     Dates: start: 201410
  13. NEXIUM [Concomitant]
     Active Substance: ESOMEPRAZOLE MAGNESIUM
     Dosage: UNK
  14. VENTOLIN HFA [Concomitant]
     Active Substance: ALBUTEROL SULFATE
     Dosage: UNK
     Route: 055
  15. INDACATEROL [Suspect]
     Active Substance: INDACATEROL
     Indication: ASTHMA
     Dosage: 1 DF (PUFF), BID
     Route: 055
     Dates: start: 20150205
  16. VALSARTAN. [Suspect]
     Active Substance: VALSARTAN
     Indication: PRODUCT USED FOR UNKNOWN INDICATION
     Dosage: 80 MG, UNK
     Route: 048
  17. ATROVENT [Concomitant]
     Active Substance: IPRATROPIUM BROMIDE
     Indication: ASTHMA
     Dosage: UNK
  18. CALCIUM + VIT D [Concomitant]
     Active Substance: CALCIUM\VITAMIN D
     Dosage: UNK
  19. SINGULAIR [Concomitant]
     Active Substance: MONTELUKAST SODIUM
     Dosage: 10 MG, UNK

REACTIONS (27)
  - Jaw fracture [Unknown]
  - Lower respiratory tract infection [Unknown]
  - Tachycardia [Unknown]
  - Asthma [Unknown]
  - Face injury [Unknown]
  - Sinus congestion [Unknown]
  - Eye pruritus [Unknown]
  - Sinusitis [Unknown]
  - Viral infection [Unknown]
  - White blood cell count increased [Unknown]
  - Neutrophil count increased [Unknown]
  - Dyspnoea [Unknown]
  - Sinus disorder [Unknown]
  - Off label use [Unknown]
  - Red blood cell count increased [Unknown]
  - Viral upper respiratory tract infection [Unknown]
  - Blood immunoglobulin E increased [Unknown]
  - Meniscus injury [Unknown]
  - Wheezing [Unknown]
  - Influenza [Unknown]
  - Hyperhidrosis [Unknown]
  - Glycosylated haemoglobin increased [Unknown]
  - Infection [Unknown]
  - Obstructive airways disorder [Unknown]
  - Haematocrit increased [Unknown]
  - Mucosal discolouration [Unknown]
  - Cough [Unknown]

NARRATIVE: CASE EVENT DATE: 201410
